FAERS Safety Report 9071166 (Version 3)
Quarter: 2013Q3

REPORT INFORMATION
  Report Type: Spontaneous
  Country: US (occurrence: US)
  Receive Date: 20130206
  Receipt Date: 20130822
  Transmission Date: 20140515
  Serious: Yes (Death, Hospitalization)
  Sender: FDA-Public Use
  Company Number: US-B.I. PHARMACEUTICALS,INC./RIDGEFIELD-2013-BI-02906BP

PATIENT
  Age: 71 Year
  Sex: Male
  Weight: 66.68 kg

DRUGS (15)
  1. PRADAXA [Suspect]
     Indication: ATRIAL FIBRILLATION
     Dosage: 300 MG
     Route: 048
     Dates: start: 20110706, end: 20120219
  2. PRADAXA [Suspect]
     Indication: ANTICOAGULANT THERAPY
  3. TOPROL XL [Concomitant]
     Route: 048
  4. CARDIZEM [Concomitant]
     Dosage: 240 MG
     Route: 048
  5. MAGNESIUM [Concomitant]
     Dosage: 64 MG
     Route: 048
  6. ADVAIR INH [Concomitant]
     Route: 055
  7. LIPITOR [Concomitant]
     Dosage: 40 MG
     Route: 048
  8. OXYGEN [Concomitant]
  9. ALDACTONE [Concomitant]
     Dosage: 50 MG
     Route: 048
  10. XOPENEX [Concomitant]
  11. ZOLOFT [Concomitant]
     Dosage: 50 MG
     Route: 048
  12. SPIRIVA [Concomitant]
     Dosage: 18 MCG
  13. LASIX [Concomitant]
     Dosage: 80 MG
     Route: 048
     Dates: start: 2005, end: 20120423
  14. MAXAIR INH [Concomitant]
     Route: 055
     Dates: start: 2005, end: 20120423
  15. ACETAZOLAMIDE [Concomitant]
     Route: 048

REACTIONS (4)
  - Haemorrhage intracranial [Fatal]
  - Oesophageal haemorrhage [Fatal]
  - Haemoptysis [Unknown]
  - Visual impairment [Unknown]
